FAERS Safety Report 4769110-3 (Version None)
Quarter: 2005Q3

REPORT INFORMATION
  Report Type: 
  Country: None (occurrence: None)
  Receive Date: 20050912
  Receipt Date: 20041020
  Transmission Date: 20060218
  Serious: Yes (Other)
  Sender: FDA-Public Use
  Company Number: 2004-BP-10250BP

PATIENT
  Age: 39 Year
  Sex: Female

DRUGS (6)
  1. VIRAMUNE [Suspect]
     Indication: HIV INFECTION
     Dosage: 400 MG, PO
     Route: 048
     Dates: start: 20040217, end: 20040229
  2. COMBIVIR [Suspect]
     Indication: HIV INFECTION
     Dosage: 300/150, PO
     Route: 048
     Dates: start: 20010313, end: 20040229
  3. SUSTIVA [Suspect]
     Indication: HIV INFECTION
     Dosage: 600 MG, PO
     Route: 048
     Dates: start: 20010313, end: 20040217
  4. TRIZIVIR [Suspect]
     Indication: HIV INFECTION
     Dosage: 300/150, PO
     Route: 048
     Dates: start: 20040301, end: 20040310
  5. VIREAD [Suspect]
     Indication: HIV INFECTION
     Dosage: 300 MG, PO
     Route: 048
     Dates: start: 20040310, end: 20040625
  6. KALETRA [Suspect]
     Indication: HIV INFECTION
     Dosage: 133.3 MG, PO
     Route: 048
     Dates: start: 20040625

REACTIONS (2)
  - PAIN [None]
  - RASH [None]
